FAERS Safety Report 18452184 (Version 1)
Quarter: 2020Q4

REPORT INFORMATION
  Report Type: Spontaneous
  Country: IN (occurrence: IN)
  Receive Date: 20201102
  Receipt Date: 20201102
  Transmission Date: 20210114
  Serious: Yes (Hospitalization, Other)
  Sender: FDA-Public Use
  Company Number: IN-GLAXOSMITHKLINE-IN2020GSK209280

PATIENT
  Age: 35 Year
  Sex: Male

DRUGS (6)
  1. TENOFOVIR DISOPROXIL FUMARATE. [Suspect]
     Active Substance: TENOFOVIR DISOPROXIL FUMARATE
     Indication: HIV INFECTION
     Dosage: UNK
  2. LAMIVUDINE. [Suspect]
     Active Substance: LAMIVUDINE
     Indication: HIV INFECTION
     Dosage: UNK
  3. EFAVIRENZ. [Suspect]
     Active Substance: EFAVIRENZ
     Indication: HIV INFECTION
     Dosage: UNK
  4. FLUCONAZOLE. [Concomitant]
     Active Substance: FLUCONAZOLE
     Indication: OPPORTUNISTIC INFECTION PROPHYLAXIS
  5. AZITHROMYCIN ANHYDROUS. [Concomitant]
     Active Substance: AZITHROMYCIN ANHYDROUS
     Indication: OPPORTUNISTIC INFECTION PROPHYLAXIS
  6. COTRIMOXAZOLE [Concomitant]
     Active Substance: SULFAMETHOXAZOLE\TRIMETHOPRIM
     Indication: OPPORTUNISTIC INFECTION PROPHYLAXIS
     Route: 048

REACTIONS (12)
  - Sensory disturbance [Recovering/Resolving]
  - Spinal pain [Recovering/Resolving]
  - Hyperintensity in brain deep nuclei [Recovering/Resolving]
  - Central nervous system immune reconstitution inflammatory response [Recovering/Resolving]
  - Abdominal discomfort [Recovering/Resolving]
  - Hypoaesthesia [Recovering/Resolving]
  - Areflexia [Recovering/Resolving]
  - Myelitis transverse [Recovering/Resolving]
  - Urinary retention [Recovering/Resolving]
  - Muscular weakness [Recovering/Resolving]
  - Paraparesis [Recovering/Resolving]
  - Hypotonia [Recovering/Resolving]
